FAERS Safety Report 15581095 (Version 3)
Quarter: 2018Q4

REPORT INFORMATION
  Report Type: Report from Study
  Country: AT (occurrence: AT)
  Receive Date: 20181102
  Receipt Date: 20181214
  Transmission Date: 20190205
  Serious: Yes (Death, Hospitalization, Other)
  Sender: FDA-Public Use
  Company Number: AT-B.I. PHARMACEUTICALS,INC./RIDGEFIELD-2018-BI-053538

PATIENT
  Age: 84 Year
  Sex: Male

DRUGS (7)
  1. UROSIN [Concomitant]
     Active Substance: ALLOPURINOL
     Indication: PRODUCT USED FOR UNKNOWN INDICATION
     Route: 065
  2. LESCOL [Concomitant]
     Active Substance: FLUVASTATIN SODIUM
     Indication: PRODUCT USED FOR UNKNOWN INDICATION
     Route: 065
  3. PRADAXA [Suspect]
     Active Substance: DABIGATRAN ETEXILATE MESYLATE
     Indication: ATRIAL TACHYCARDIA
  4. PRADAXA [Suspect]
     Active Substance: DABIGATRAN ETEXILATE MESYLATE
     Indication: ATRIAL FIBRILLATION
     Route: 065
     Dates: start: 201605, end: 20160709
  5. ALNA [Concomitant]
     Active Substance: TAMSULOSIN HYDROCHLORIDE
     Indication: PRODUCT USED FOR UNKNOWN INDICATION
     Route: 065
  6. DETRUSIDOL [Concomitant]
     Indication: PRODUCT USED FOR UNKNOWN INDICATION
     Route: 065
  7. SELOKEN [Concomitant]
     Active Substance: METOPROLOL
     Indication: PRODUCT USED FOR UNKNOWN INDICATION
     Dosage: DOSE: 47.5 MILLIGRAM
     Route: 065

REACTIONS (14)
  - Visual impairment [Unknown]
  - Pyrexia [Unknown]
  - Disorientation [Unknown]
  - Staphylococcus test positive [Unknown]
  - Pyrexia [Unknown]
  - Pyrexia [Recovered/Resolved]
  - Organic brain syndrome [Unknown]
  - Somnolence [Unknown]
  - Death [Fatal]
  - Headache [Unknown]
  - Pituitary tumour benign [Unknown]
  - Post procedural complication [Unknown]
  - Headache [Unknown]
  - Sepsis [Unknown]

NARRATIVE: CASE EVENT DATE: 20160706
